FAERS Safety Report 14353068 (Version 2)
Quarter: 2018Q1

REPORT INFORMATION
  Report Type: Report from Study
  Country: US (occurrence: US)
  Receive Date: 20180104
  Receipt Date: 20180129
  Transmission Date: 20180509
  Serious: No
  Sender: FDA-Public Use
  Company Number: PHEH2017US042537

PATIENT
  Sex: Male

DRUGS (1)
  1. COSENTYX [Suspect]
     Active Substance: SECUKINUMAB
     Indication: LIMB DISCOMFORT
     Dosage: 150 MG, BID
     Route: 065

REACTIONS (3)
  - Skin fissures [Recovered/Resolved]
  - Wound [Unknown]
  - Product use in unapproved indication [Unknown]
